FAERS Safety Report 11850029 (Version 1)
Quarter: 2015Q4

REPORT INFORMATION
  Report Type: Spontaneous
  Country: US (occurrence: US)
  Receive Date: 20151218
  Receipt Date: 20151218
  Transmission Date: 20160305
  Serious: No
  Sender: FDA-Public Use
  Company Number: US-JNJFOC-20151118127

PATIENT
  Sex: Male
  Weight: 79.38 kg

DRUGS (2)
  1. INVEGA [Suspect]
     Active Substance: PALIPERIDONE
     Indication: DELUSION
     Route: 048
  2. INVEGA [Suspect]
     Active Substance: PALIPERIDONE
     Indication: HALLUCINATION, AUDITORY
     Route: 048

REACTIONS (5)
  - Mental disorder [Unknown]
  - Depressed mood [Unknown]
  - Drug effect decreased [Unknown]
  - Physical abuse [Unknown]
  - Adverse drug reaction [Unknown]
